FAERS Safety Report 7272599-1 (Version None)
Quarter: 2011Q1

REPORT INFORMATION
  Report Type: 
  Country: None (occurrence: None)
  Receive Date: 20110131
  Receipt Date: 20110131
  Transmission Date: 20110831
  Serious: Yes (Hospitalization)
  Sender: FDA-Public Use
  Company Number: None

PATIENT
  Sex: Male
  Weight: 119.8 kg

DRUGS (4)
  1. ATORVASTATIN [Concomitant]
  2. ERBITUX [Suspect]
     Dosage: 2925 MG
  3. ELOXATIN [Suspect]
     Dosage: 468 MG
  4. XELODA [Suspect]
     Dosage: 75000 MG

REACTIONS (1)
  - ACUTE MYOCARDIAL INFARCTION [None]
